FAERS Safety Report 6087909-0 (Version None)
Quarter: 2009Q1

REPORT INFORMATION
  Report Type: 
  Country: None (occurrence: None)
  Receive Date: 20090223
  Receipt Date: 20090216
  Transmission Date: 20090719
  Serious: Yes (Other)
  Sender: FDA-Public Use
  Company Number: FR-ROXANE LABORATORIES, INC.-2009-RO-00155RO

PATIENT
  Age: 9 Year
  Sex: Female

DRUGS (13)
  1. METHOTREXATE [Suspect]
     Indication: OSTEOSARCOMA METASTATIC
  2. METHOTREXATE [Suspect]
     Indication: METASTASES TO LUNG
  3. METHOTREXATE [Suspect]
  4. DEXAMETHASONE TAB [Suspect]
     Indication: ANAPHYLACTOID REACTION
  5. DEXAMETHASONE TAB [Suspect]
     Indication: PREMEDICATION
  6. FOLINIC ACID [Suspect]
  7. FOLINIC ACID [Suspect]
  8. ETOPOSIDE [Suspect]
     Indication: OSTEOSARCOMA METASTATIC
  9. ETOPOSIDE [Suspect]
     Indication: METASTASES TO LUNG
  10. IFOSFAMIDE [Suspect]
     Indication: OSTEOSARCOMA METASTATIC
  11. IFOSFAMIDE [Suspect]
     Indication: METASTASES TO LUNG
  12. DIPHENHYDRAMINE HCL [Suspect]
     Indication: ANAPHYLACTOID REACTION
     Route: 042
  13. DIPHENHYDRAMINE HCL [Suspect]
     Indication: PREMEDICATION

REACTIONS (3)
  - ANAPHYLACTOID REACTION [None]
  - HAEMATOLOGY TEST ABNORMAL [None]
  - MUCOSAL INFLAMMATION [None]
